FAERS Safety Report 9772204 (Version 4)
Quarter: 2014Q2

REPORT INFORMATION
  Report Type: Report from Study
  Country: US (occurrence: US)
  Receive Date: 20131219
  Receipt Date: 20140520
  Transmission Date: 20141212
  Serious: Yes (Other)
  Sender: FDA-Public Use
  Company Number: US-SA-2013SA099864

PATIENT
  Age: 42 Year
  Sex: Female

DRUGS (4)
  1. AUBAGIO [Suspect]
     Indication: MULTIPLE SCLEROSIS
     Route: 048
  2. AUBAGIO [Suspect]
     Indication: MULTIPLE SCLEROSIS
     Route: 048
     Dates: start: 20130313
  3. AUBAGIO [Suspect]
     Indication: MULTIPLE SCLEROSIS
     Route: 048
     Dates: start: 20131102, end: 20140319
  4. AUBAGIO [Suspect]
     Indication: MULTIPLE SCLEROSIS
     Route: 048
     Dates: end: 20140324

REACTIONS (9)
  - Gallbladder operation [Unknown]
  - Intervertebral disc disorder [Unknown]
  - Osteoarthritis [Unknown]
  - Tremor [Unknown]
  - Pain in extremity [Unknown]
  - Muscular weakness [Unknown]
  - Paraesthesia [Unknown]
  - Multiple sclerosis relapse [Unknown]
  - Drug dose omission [Unknown]
